FAERS Safety Report 6196379-3 (Version None)
Quarter: 2009Q2

REPORT INFORMATION
  Report Type: 
  Country: None (occurrence: None)
  Receive Date: 20090520
  Receipt Date: 20070627
  Transmission Date: 20091009
  Serious: Yes (Other)
  Sender: FDA-Public Use
  Company Number: US-ASTRAZENECA-2006UW27637

PATIENT
  Age: 42 Year
  Sex: Female
  Weight: 106.8 kg

DRUGS (24)
  1. SEROQUEL [Suspect]
     Indication: HALLUCINATION
     Dosage: 200 MG - 500 MG
     Route: 048
     Dates: start: 20011126
  2. SEROQUEL [Suspect]
     Route: 048
     Dates: start: 20010101, end: 20060501
  3. GEODON [Concomitant]
     Route: 065
  4. ZYPREXA [Concomitant]
     Route: 065
  5. VICODIN [Concomitant]
     Route: 048
  6. INDERAL [Concomitant]
     Route: 065
  7. ESKALITH [Concomitant]
     Dosage: 300 MG - 1500 MG
     Route: 048
  8. TRICOR [Concomitant]
     Route: 065
  9. SYNTHROID [Concomitant]
     Dosage: 0.5 MG - 50 MG
     Route: 048
  10. REMERON [Concomitant]
     Route: 065
  11. RESTORIL [Concomitant]
     Route: 065
  12. AUGMENTIN '125' [Concomitant]
     Route: 065
  13. NIACIN [Concomitant]
     Route: 065
  14. MOBIC [Concomitant]
     Route: 065
  15. ELAVIL [Concomitant]
     Dosage: 10 -30 MG
     Route: 065
  16. LIPITOR [Concomitant]
     Route: 065
  17. WELLBUTRIN [Concomitant]
     Route: 048
  18. PAXIL [Concomitant]
     Dosage: 40 MG - 150 MG
     Route: 048
  19. GLIPIZIDE [Concomitant]
     Route: 048
  20. METFORMIN HCL [Concomitant]
     Route: 048
  21. GEMFIBROZIL [Concomitant]
     Route: 065
  22. IBUPROFEN [Concomitant]
     Route: 065
  23. ADVAIR HFA [Concomitant]
     Route: 065
  24. ALBUTEROL [Concomitant]
     Route: 065

REACTIONS (30)
  - ABDOMINAL PAIN [None]
  - BACK PAIN [None]
  - BLOOD CHOLESTEROL INCREASED [None]
  - BREAST MASS [None]
  - BRONCHITIS [None]
  - DIABETES MELLITUS [None]
  - DIABETIC NEUROPATHY [None]
  - DIARRHOEA [None]
  - DYSPHAGIA [None]
  - EAR PAIN [None]
  - EUSTACHIAN TUBE DYSFUNCTION [None]
  - FATIGUE [None]
  - FLANK PAIN [None]
  - HAEMATURIA [None]
  - HEARING IMPAIRED [None]
  - HYPERGLYCAEMIA [None]
  - HYPERLIPIDAEMIA [None]
  - JOINT INJURY [None]
  - LARYNGITIS [None]
  - LEUKOCYTOSIS [None]
  - LYMPHOEDEMA [None]
  - MYALGIA [None]
  - NEURALGIA [None]
  - OSTEOARTHRITIS [None]
  - PAIN IN EXTREMITY [None]
  - ROTATOR CUFF SYNDROME [None]
  - SINUSITIS [None]
  - STRESS [None]
  - UPPER RESPIRATORY TRACT INFECTION [None]
  - URINARY TRACT INFECTION [None]
